FAERS Safety Report 10477775 (Version 1)
Quarter: 2014Q3

REPORT INFORMATION
  Report Type: Not Available
  Country: US (occurrence: US)
  Receive Date: 20140926
  Receipt Date: 20140926
  Transmission Date: 20150326
  Serious: No
  Sender: FDA-Public Use
  Company Number: US-LUPIN PHARMACEUTICALS INC.-E2B_00002442

PATIENT
  Sex: Male

DRUGS (1)
  1. LOSORTAN POTASSIUM [Suspect]
     Active Substance: LOSARTAN POTASSIUM
     Indication: HYPERTENSION
     Dosage: 1.5 TABLET
     Dates: start: 20140804, end: 20140818

REACTIONS (2)
  - Drug ineffective [Recovered/Resolved]
  - Hypertension [Recovered/Resolved]
